FAERS Safety Report 15732756 (Version 1)
Quarter: 2018Q4

REPORT INFORMATION
  Report Type: Report from Study
  Country: US (occurrence: US)
  Receive Date: 20181217
  Receipt Date: 20181217
  Transmission Date: 20190205
  Serious: Yes (Other)
  Sender: FDA-Public Use
  Company Number: US-BAXTER-2018BAX030763

PATIENT

DRUGS (1)
  1. DOBUTAMINE HYDROCHLORIDE IN DEXTROSE [Suspect]
     Active Substance: DEXTROSE MONOHYDRATE\DEXTROSE MONOHYDRATE\DOBUTAMINE HYDROCHLORIDE\DOBUTAMINE HYDROCHLORIDE
     Indication: CARDIAC PHARMACOLOGIC STRESS TEST
     Dosage: TITRATED UP TO 40 UG/KG/MIN (WITHOUT OR WITH UP TO 1.5 MG OF ATROPINE) TO ACHIEVE 80% OF THE MAXIMUM
     Route: 042

REACTIONS (2)
  - Wall motion score index abnormal [Unknown]
  - Cardiac stress test abnormal [Unknown]
